FAERS Safety Report 6103522-0 (Version None)
Quarter: 2009Q1

REPORT INFORMATION
  Report Type: 
  Country: None (occurrence: None)
  Receive Date: 20090305
  Receipt Date: 20090202
  Transmission Date: 20090719
  Serious: No
  Sender: FDA-Public Use
  Company Number: US-BAYER-200812732BCC

PATIENT
  Age: 55 Year
  Sex: Female

DRUGS (5)
  1. ALEVE [Suspect]
     Indication: PAIN IN EXTREMITY
     Route: 048
     Dates: start: 20050101
  2. ALEVE [Suspect]
     Dosage: UNIT DOSE: 220 MG
     Route: 048
     Dates: start: 20060101
  3. VITAMINS [Concomitant]
  4. GLUCOSAMINE [Concomitant]
  5. CHONDROITIN [Concomitant]

REACTIONS (3)
  - ALOPECIA [None]
  - GINGIVAL BLEEDING [None]
  - TRICHORRHEXIS [None]
